FAERS Safety Report 4657372-2 (Version None)
Quarter: 2005Q2

REPORT INFORMATION
  Report Type: 
  Country: None (occurrence: None)
  Receive Date: 20050405
  Receipt Date: 20040629
  Transmission Date: 20051028
  Serious: Yes (Other)
  Sender: FDA-Public Use
  Company Number: 2004037190

PATIENT
  Age: 41 Year
  Sex: Female

DRUGS (3)
  1. GEODON [Suspect]
     Indication: TIC
     Dosage: 120 MG (2 IN 1 D)
     Dates: start: 20040101, end: 20040201
  2. ZOLOFT [Suspect]
     Indication: DEPRESSION
     Dosage: 100 MG
  3. LEVOTHYROXINE SODIUM [Suspect]
     Indication: THYROID DISORDER
     Dosage: 0.15 MG

REACTIONS (9)
  - AGITATION [None]
  - CORNEAL REFLEX DECREASED [None]
  - DYSKINESIA [None]
  - DYSPHAGIA [None]
  - DYSTONIA [None]
  - HALLUCINATION, VISUAL [None]
  - MUSCLE TIGHTNESS [None]
  - TREMOR [None]
  - VISION BLURRED [None]
